FAERS Safety Report 10298915 (Version 3)
Quarter: 2015Q3

REPORT INFORMATION
  Report Type: Spontaneous
  Country: US (occurrence: US)
  Receive Date: 20140711
  Receipt Date: 20150814
  Transmission Date: 20151125
  Serious: No
  Sender: FDA-Public Use
  Company Number: US-GILEAD-2013-0081285

PATIENT
  Age: 47 Year
  Sex: Male

DRUGS (15)
  1. LETAIRIS [Suspect]
     Active Substance: AMBRISENTAN
     Indication: PULMONARY ARTERIAL HYPERTENSION
     Dosage: 10 MG, QD
     Route: 048
     Dates: start: 20110413
  2. DIGOXIN. [Concomitant]
     Active Substance: DIGOXIN
  3. COLACE [Concomitant]
     Active Substance: DOCUSATE SODIUM
  4. COLCHICINE. [Concomitant]
     Active Substance: COLCHICINE
  5. LETAIRIS [Suspect]
     Active Substance: AMBRISENTAN
     Indication: HEPATIC CIRRHOSIS
  6. BENAZEPRIL [Concomitant]
     Active Substance: BENAZEPRIL HYDROCHLORIDE
  7. LASIX [Concomitant]
     Active Substance: FUROSEMIDE
  8. METAMUCIL [Concomitant]
     Active Substance: PLANTAGO SEED
  9. FERROUS SULFATE [Concomitant]
     Active Substance: FERROUS SULFATE\FERROUS SULFATE, DRIED
  10. LACTULOSE. [Concomitant]
     Active Substance: LACTULOSE
  11. GLIPIZIDE. [Concomitant]
     Active Substance: GLIPIZIDE
  12. SILDENAFIL. [Concomitant]
     Active Substance: SILDENAFIL
  13. CARVEDILOL. [Concomitant]
     Active Substance: CARVEDILOL
  14. ALLOPURINOL. [Concomitant]
     Active Substance: ALLOPURINOL
  15. OMEPRAZOLE. [Concomitant]
     Active Substance: OMEPRAZOLE

REACTIONS (1)
  - Liver disorder [Unknown]
